FAERS Safety Report 9059394 (Version 1)
Quarter: 2013Q1

REPORT INFORMATION
  Report Type: Spontaneous
  Country: IE (occurrence: IE)
  Receive Date: 20130211
  Receipt Date: 20130211
  Transmission Date: 20140127
  Serious: Yes (Hospitalization)
  Sender: FDA-Public Use
  Company Number: IE-GLAXOSMITHKLINE-B0861075A

PATIENT
  Age: 32 Year
  Sex: Female

DRUGS (7)
  1. ZOFRAN [Suspect]
     Indication: PROCEDURAL NAUSEA
     Dosage: 8MG PER DAY
     Route: 065
     Dates: start: 20130108, end: 20130108
  2. REMIFENTANIL [Concomitant]
  3. PARACETAMOL [Concomitant]
  4. DEXAMETHASONE [Concomitant]
  5. DICLOFENAC [Concomitant]
  6. CEFUROXIME [Concomitant]
  7. SEVOFLURANE [Concomitant]

REACTIONS (2)
  - Tremor [Recovered/Resolved]
  - Eye movement disorder [Recovered/Resolved]
